FAERS Safety Report 11777708 (Version 1)
Quarter: 2015Q4

REPORT INFORMATION
  Report Type: Spontaneous
  Country: US (occurrence: None)
  Receive Date: 20151124
  Receipt Date: 20151124
  Transmission Date: 20160304
  Serious: No
  Sender: FDA-Public Use
  Company Number: None

PATIENT
  Age: 53 Year
  Sex: Female
  Weight: 58.97 kg

DRUGS (1)
  1. ANASTROZOLE 1MG ACCORD [Suspect]
     Active Substance: ANASTROZOLE
     Indication: BREAST CANCER
     Dosage: 1 TABLET
     Route: 048
     Dates: start: 20150428

REACTIONS (6)
  - Hot flush [None]
  - Irritability [None]
  - Dizziness [None]
  - Confusional state [None]
  - Acne [None]
  - Fatigue [None]

NARRATIVE: CASE EVENT DATE: 20151122
